FAERS Safety Report 4899448-0 (Version None)
Quarter: 2006Q1

REPORT INFORMATION
  Report Type: 
  Country: None (occurrence: None)
  Receive Date: 20060118
  Receipt Date: 20050708
  Transmission Date: 20060701
  Serious: No
  Sender: FDA-Public Use
  Company Number: 2005001285

PATIENT
  Age: 70 Year
  Sex: Female

DRUGS (2)
  1. TARCEVA [Suspect]
     Indication: PANCREATIC CARCINOMA
     Dosage: 150 MG (QD); 150 MG (QOD) : ORAL
     Route: 048
  2. GEMZAR [Concomitant]

REACTIONS (1)
  - PLATELET COUNT DECREASED [None]
